FAERS Safety Report 8529635-1 (Version None)
Quarter: 2012Q3

REPORT INFORMATION
  Report Type: 
  Country: None (occurrence: None)
  Receive Date: 20120723
  Receipt Date: 20120709
  Transmission Date: 20120928
  Serious: Yes (Death, Hospitalization)
  Sender: FDA-Public Use
  Company Number: JP-MYLANLABS-2012S1014236

PATIENT
  Age: 15 Year
  Sex: Male

DRUGS (8)
  1. FLUVOXAMINE MALEATE [Suspect]
     Indication: OVERDOSE
     Dosage: 15 MG/DAY
     Route: 065
     Dates: start: 20090101, end: 20100101
  2. FLUVOXAMINE MALEATE [Suspect]
     Route: 048
     Dates: start: 20100101, end: 20100101
  3. TANDOSPIRONE [Suspect]
     Indication: SOCIAL PHOBIA
     Dosage: 60 MG/DAY
     Route: 065
     Dates: start: 20090101, end: 20100101
  4. FLUVOXAMINE MALEATE [Suspect]
     Route: 048
     Dates: start: 20100101, end: 20100101
  5. TANDOSPIRONE [Suspect]
     Route: 048
     Dates: start: 20100101, end: 20100101
  6. FLUVOXAMINE MALEATE [Suspect]
     Indication: SOCIAL PHOBIA
     Dosage: 15 MG/DAY
     Route: 065
     Dates: start: 20090101, end: 20100101
  7. TANDOSPIRONE [Suspect]
     Indication: OVERDOSE
     Dosage: 60 MG/DAY
     Route: 065
     Dates: start: 20090101, end: 20100101
  8. TANDOSPIRONE [Suspect]
     Route: 048
     Dates: start: 20100101, end: 20100101

REACTIONS (12)
  - METABOLIC ACIDOSIS [None]
  - SEROTONIN SYNDROME [None]
  - OVERDOSE [None]
  - CARDIO-RESPIRATORY ARREST [None]
  - DISSEMINATED INTRAVASCULAR COAGULATION [None]
  - RENAL FAILURE ACUTE [None]
  - DRESSLER'S SYNDROME [None]
  - LOSS OF CONSCIOUSNESS [None]
  - RHABDOMYOLYSIS [None]
  - CONVULSION [None]
  - ELECTROCARDIOGRAM QT PROLONGED [None]
  - BRAIN OEDEMA [None]
